FAERS Safety Report 8915813 (Version 1)
Quarter: 2012Q4

REPORT INFORMATION
  Report Type: 
  Country: CO (occurrence: CO)
  Receive Date: 20121119
  Receipt Date: 20121119
  Transmission Date: 20130627
  Serious: Yes (Other)
  Sender: FDA-Public Use
  Company Number: CO-PFIZER INC-2012285352

PATIENT
  Age: 9 Year
  Sex: Female

DRUGS (3)
  1. GENOTROPIN [Suspect]
     Indication: GROWTH HORMONE DEFICIENCY
     Dosage: UNK
     Route: 058
     Dates: start: 20121109, end: 20121111
  2. LORATADINE [Concomitant]
     Indication: ASTHMA
     Dosage: 5.5 cm, 1x/day
     Route: 048
     Dates: start: 2007
  3. LORATADINE [Concomitant]
     Indication: ALLERGIC RHINITIS

REACTIONS (1)
  - Neck mass [Unknown]
